FAERS Safety Report 9475738 (Version 1)
Quarter: 2013Q3

REPORT INFORMATION
  Report Type: Spontaneous
  Country: US (occurrence: None)
  Receive Date: 20130821
  Receipt Date: 20130821
  Transmission Date: 20140515
  Serious: No
  Sender: FDA-Public Use
  Company Number: GAM-109-13-US

PATIENT
  Age: 43 Year
  Sex: Male

DRUGS (11)
  1. OCTAGAM [Suspect]
     Indication: GUILLAIN-BARRE SYNDROME
     Dosage: 5 IN 1 D CYCLICAL
     Dates: start: 20130409, end: 20130414
  2. PIOGLITAZONE [Concomitant]
  3. GABAPENTIN [Concomitant]
  4. INSULIN LISPRO [Concomitant]
  5. INSULIN GLARGINE [Concomitant]
  6. MATAXELONE [Concomitant]
  7. PRAMLINTIDE [Concomitant]
  8. TIZANIDINE [Concomitant]
  9. CALCIUM [Concomitant]
  10. MAGNESIUM [Concomitant]
  11. POTASSIUM [Concomitant]

REACTIONS (3)
  - Chest discomfort [None]
  - Refusal of treatment by patient [None]
  - Infusion related reaction [None]
